FAERS Safety Report 7371621-1 (Version None)
Quarter: 2011Q1

REPORT INFORMATION
  Report Type: 
  Country: None (occurrence: None)
  Receive Date: 20110324
  Receipt Date: 20110315
  Transmission Date: 20110831
  Serious: Yes (Hospitalization)
  Sender: FDA-Public Use
  Company Number: US-GENZYME-CERZ-1001972

PATIENT
  Sex: Male
  Weight: 107 kg

DRUGS (1)
  1. CEREZYME [Suspect]
     Indication: GAUCHER'S DISEASE
     Dosage: 6400 U, Q2W
     Route: 042
     Dates: start: 20070904

REACTIONS (1)
  - HOSPITALISATION [None]
